FAERS Safety Report 14723885 (Version 1)
Quarter: 2018Q2

REPORT INFORMATION
  Report Type: Spontaneous
  Country: US (occurrence: US)
  Receive Date: 20180405
  Receipt Date: 20180405
  Transmission Date: 20180711
  Serious: Yes (Other)
  Sender: FDA-Public Use
  Company Number: US-CUTISPHARMA, INC.-2045179

PATIENT
  Age: 2 Month
  Sex: Male
  Weight: 4.09 kg

DRUGS (2)
  1. INFANTS GAS RELIEF [Concomitant]
     Active Substance: DIMETHICONE
     Route: 048
     Dates: start: 20180119
  2. FIRST LANSOPRAZOLE RX [Suspect]
     Active Substance: LANSOPRAZOLE
     Indication: GASTROOESOPHAGEAL REFLUX DISEASE
     Route: 048
     Dates: start: 20180316, end: 20180317

REACTIONS (3)
  - Decreased appetite [Unknown]
  - Diarrhoea [Recovered/Resolved]
  - Dehydration [Recovered/Resolved]

NARRATIVE: CASE EVENT DATE: 20180316
